FAERS Safety Report 5695872-7 (Version None)
Quarter: 2008Q2

REPORT INFORMATION
  Report Type: 
  Country: None (occurrence: None)
  Receive Date: 20080407
  Receipt Date: 20080402
  Transmission Date: 20081010
  Serious: Yes (Life-Threatening)
  Sender: FDA-Public Use
  Company Number: GB-WYE-G01338208

PATIENT
  Age: 85 Year
  Sex: Female

DRUGS (4)
  1. EFFEXOR [Suspect]
     Indication: DEPRESSION
     Dosage: 37.5MG, FREQUENCY UNKNOWN
     Route: 048
     Dates: start: 20080306, end: 20080306
  2. MIRTAZAPINE [Concomitant]
     Indication: DEPRESSION
     Dosage: 45MG, FREQUENCY UNKNOWN
     Route: 048
     Dates: start: 20080101
  3. RAMIPRIL [Concomitant]
     Indication: HYPERTENSION
     Dosage: 5MG, FREQUENCY UNKNOWN
  4. BETAHISTINE [Concomitant]
     Route: 048

REACTIONS (3)
  - PULSE ABSENT [None]
  - RESPIRATORY ARREST [None]
  - SYNCOPE [None]
